FAERS Safety Report 8186354-1 (Version None)
Quarter: 2012Q1

REPORT INFORMATION
  Report Type: 
  Country: None (occurrence: None)
  Receive Date: 20120306
  Receipt Date: 20120227
  Transmission Date: 20120608
  Serious: Yes (Hospitalization, Other)
  Sender: FDA-Public Use
  Company Number: US-BAYER-2011-033933

PATIENT
  Age: 32 Year
  Sex: Female
  Weight: 117.91 kg

DRUGS (1)
  1. YAZ [Suspect]
     Indication: CONTRACEPTION
     Dosage: UNK
     Dates: start: 20080221, end: 20100901

REACTIONS (6)
  - GALLBLADDER DISORDER [None]
  - CHOLECYSTITIS CHRONIC [None]
  - INJURY [None]
  - PAIN [None]
  - ANXIETY [None]
  - ANHEDONIA [None]
